FAERS Safety Report 5011868-2 (Version None)
Quarter: 2006Q2

REPORT INFORMATION
  Report Type: 
  Country: None (occurrence: None)
  Receive Date: 20060526
  Receipt Date: 20060518
  Transmission Date: 20061013
  Serious: Yes (Hospitalization)
  Sender: FDA-Public Use
  Company Number: FR-SANOFI-SYNTHELABO-A02200601306

PATIENT
  Age: 70 Year
  Sex: Male

DRUGS (8)
  1. ASPIRIN [Concomitant]
     Indication: DRUG USE FOR UNKNOWN INDICATION
     Dosage: UNK
     Route: 065
     Dates: start: 20040212
  2. SELOKEN [Concomitant]
     Indication: DRUG USE FOR UNKNOWN INDICATION
     Dosage: UNK
     Route: 048
     Dates: start: 20040212
  3. CORVASAL [Suspect]
     Indication: ARTERIOGRAM CORONARY
     Dosage: UNK
     Route: 022
     Dates: start: 20040224, end: 20040224
  4. TAHOR [Suspect]
     Indication: DRUG USE FOR UNKNOWN INDICATION
     Dosage: UNK
     Route: 048
     Dates: start: 20040216, end: 20060201
  5. VISIPAQUE [Suspect]
     Indication: ARTERIOGRAM CORONARY
     Dosage: UNK
     Route: 022
     Dates: start: 20040224, end: 20040224
  6. LOVENOX [Suspect]
     Indication: DRUG USE FOR UNKNOWN INDICATION
     Dosage: UNK
     Route: 058
     Dates: start: 20040212, end: 20040217
  7. COVERSYL [Suspect]
     Indication: DRUG USE FOR UNKNOWN INDICATION
     Dosage: UNK
     Route: 048
     Dates: start: 20040216
  8. PLAVIX [Suspect]
     Indication: DRUG USE FOR UNKNOWN INDICATION
     Dosage: UNK
     Route: 048
     Dates: start: 20040212

REACTIONS (2)
  - PSORIASIS [None]
  - RASH MACULAR [None]
